FAERS Safety Report 5296600-X (Version None)
Quarter: 2007Q2

REPORT INFORMATION
  Report Type: 
  Country: None (occurrence: None)
  Receive Date: 20070413
  Receipt Date: 20070402
  Transmission Date: 20071010
  Serious: Yes (Disabling, Other)
  Sender: FDA-Public Use
  Company Number: JP-SHR-JP-2006-039047

PATIENT
  Age: 54 Year
  Sex: Female

DRUGS (12)
  1. BETASERON [Suspect]
     Indication: SECONDARY PROGRESSIVE MULTIPLE SCLEROSIS
     Dosage: 8 MIU, EVERY 2D
     Route: 058
     Dates: start: 20030701, end: 20060212
  2. MAGNESIUM OXIDE [Concomitant]
     Dosage: 330 MG, 3X/DAY
     Route: 048
  3. DEPAKENE [Concomitant]
     Dosage: 200 MG, 2X/DAY
     Route: 048
  4. PREDNISOLONE [Concomitant]
     Dosage: 30 MG, 1X/DAY
     Route: 048
  5. LEXOTAN [Concomitant]
     Dosage: 2 MG, 1X/DAY
     Route: 048
  6. ALTAT [Concomitant]
     Dosage: 75 MG, 2X/DAY
     Route: 048
  7. MILTAX [Concomitant]
     Dosage: UNK, AS REQ'D
     Route: 061
  8. MARZULENE [Concomitant]
     Dosage: .5 G, 3X/DAY
     Route: 048
  9. LIORESAL ^NOVARTIS^ [Concomitant]
     Dosage: 5 MG, 2X/DAY
     Route: 048
  10. BONALON [Concomitant]
     Dosage: 5 MG, 1X/DAY
     Route: 048
  11. LENDORMIN [Concomitant]
     Dosage: .5 MG, 1X/DAY
     Route: 048
  12. MYTEAR [Concomitant]
     Dosage: UNK, AS REQ'D
     Route: 047

REACTIONS (3)
  - BLINDNESS [None]
  - MULTIPLE SCLEROSIS RELAPSE [None]
  - OPTIC NEURITIS [None]
